FAERS Safety Report 8387535-4 (Version None)
Quarter: 2012Q2

REPORT INFORMATION
  Report Type: 
  Country: None (occurrence: None)
  Receive Date: 20120525
  Receipt Date: 20120522
  Transmission Date: 20120825
  Serious: Yes (Other)
  Sender: FDA-Public Use
  Company Number: PHHY2012IL044065

PATIENT
  Sex: Female

DRUGS (1)
  1. EXFORGE [Suspect]
     Indication: HYPERTENSION
     Dosage: 1 DF, (160 MG VAL/5 MG AMLO)
     Route: 048

REACTIONS (2)
  - INCREASED UPPER AIRWAY SECRETION [None]
  - ASPHYXIA [None]
